FAERS Safety Report 25157059 (Version 1)
Quarter: 2025Q2

REPORT INFORMATION
  Report Type: Spontaneous
  Country: US (occurrence: None)
  Receive Date: 20250403
  Receipt Date: 20250403
  Transmission Date: 20250717
  Serious: Yes (Disabling)
  Sender: FDA-CTU
  Company Number: None

PATIENT
  Age: 30 Year
  Sex: Female
  Weight: 62.6 kg

DRUGS (1)
  1. PARAGARD T 380A [Suspect]
     Active Substance: COPPER

REACTIONS (23)
  - Mood swings [None]
  - Irritability [None]
  - Emotional disorder [None]
  - Panic attack [None]
  - Multiple allergies [None]
  - Anxiety [None]
  - Weight increased [None]
  - Abdominal distension [None]
  - Dry eye [None]
  - Dry mouth [None]
  - Thirst [None]
  - Fatigue [None]
  - Dyspnoea [None]
  - Tremor [None]
  - Arrhythmia [None]
  - Headache [None]
  - Photosensitivity reaction [None]
  - Nausea [None]
  - Alopecia [None]
  - Night sweats [None]
  - Epistaxis [None]
  - Fatigue [None]
  - Complication associated with device [None]

NARRATIVE: CASE EVENT DATE: 20220208
